FAERS Safety Report 10059728 (Version 1)
Quarter: 2014Q2

REPORT INFORMATION
  Report Type: Spontaneous
  Country: US (occurrence: US)
  Receive Date: 20140404
  Receipt Date: 20140404
  Transmission Date: 20141212
  Serious: No
  Sender: FDA-Public Use
  Company Number: US-GLAXOSMITHKLINE-A1038722A

PATIENT
  Age: 60 Year
  Sex: Female
  Weight: 116.4 kg

DRUGS (2)
  1. ALLI [Suspect]
     Dates: end: 20130812
  2. UNKNOWN MEDICATION [Concomitant]
     Indication: FLUID RETENTION
     Dates: start: 20130813

REACTIONS (3)
  - Blood pressure abnormal [Unknown]
  - Hypertension [Unknown]
  - Treatment noncompliance [Recovered/Resolved]
